FAERS Safety Report 26066352 (Version 1)
Quarter: 2025Q4

REPORT INFORMATION
  Report Type: Spontaneous
  Country: DZ (occurrence: DZ)
  Receive Date: 20251119
  Receipt Date: 20251119
  Transmission Date: 20260117
  Serious: Yes (Other)
  Sender: GE HEALTHCARE
  Company Number: DZ-GE HEALTHCARE-2025CSU016067

PATIENT
  Age: 61 Year
  Sex: Female
  Weight: 100 kg

DRUGS (8)
  1. OMNIPAQUE [Suspect]
     Active Substance: IOHEXOL
     Indication: Computerised tomogram heart
     Dosage: 70 ML, TOTAL
     Route: 042
     Dates: start: 20251030
  2. MOLSIDOMINE [Concomitant]
     Active Substance: MOLSIDOMINE
     Dosage: UNK
  3. HYDROCHLOROTHIAZIDE\VALSARTAN [Concomitant]
     Active Substance: HYDROCHLOROTHIAZIDE\VALSARTAN
     Dosage: UNK
  4. Superstat [Concomitant]
     Dosage: UNK
  5. Prodol [Concomitant]
     Dosage: UNK
  6. LEVOTHYROXINE [Concomitant]
     Active Substance: LEVOTHYROXINE
     Dosage: UNK
  7. MOXONIDINE [Concomitant]
     Active Substance: MOXONIDINE
     Dosage: UNK
  8. Zopra [Concomitant]
     Dosage: UNK

REACTIONS (4)
  - Back pain [Recovered/Resolved]
  - Loss of consciousness [Recovered/Resolved]
  - Chills [Recovered/Resolved]
  - Vomiting [Recovered/Resolved]

NARRATIVE: CASE EVENT DATE: 20251030
